FAERS Safety Report 20204704 (Version 2)
Quarter: 2022Q2

REPORT INFORMATION
  Report Type: Report from Study
  Country: GB (occurrence: GB)
  Receive Date: 20211220
  Receipt Date: 20220411
  Transmission Date: 20220721
  Serious: Yes (Hospitalization, Disabling)
  Sender: FDA-Public Use
  Company Number: GB-BAUSCH-BL-2021-036460

PATIENT
  Age: 61 Year
  Sex: Male

DRUGS (2)
  1. BRODALUMAB [Suspect]
     Active Substance: BRODALUMAB
     Indication: Psoriasis
     Dosage: 210MG WEEK 0,1 AND 2 THEN EVERY TWO WEEKS.
     Route: 058
     Dates: start: 20210930, end: 202202
  2. BRODALUMAB [Suspect]
     Active Substance: BRODALUMAB
     Dosage: 210MG WEEK 0,1 AND 2 THEN EVERY TWO WEEKS (210 MG)
     Route: 058
     Dates: start: 20220307

REACTIONS (8)
  - COVID-19 [Recovering/Resolving]
  - Skin infection [Recovered/Resolved]
  - Leg amputation [Recovered/Resolved]
  - Peripheral swelling [Not Recovered/Not Resolved]
  - Skin discolouration [Not Recovered/Not Resolved]
  - Psoriasis [Not Recovered/Not Resolved]
  - Drug effect less than expected [Unknown]
  - Therapy interrupted [Unknown]

NARRATIVE: CASE EVENT DATE: 20211109
